FAERS Safety Report 5713904-4 (Version None)
Quarter: 2008Q2

REPORT INFORMATION
  Report Type: 
  Country: None (occurrence: None)
  Receive Date: 20080422
  Receipt Date: 20080422
  Transmission Date: 20081010
  Serious: Yes (Other)
  Sender: FDA-Public Use
  Company Number: None

PATIENT
  Age: 30 Year
  Sex: Female
  Weight: 68.0396 kg

DRUGS (2)
  1. PROVENTIL-HFA [Suspect]
     Dates: start: 20080401, end: 20080407
  2. XOPENEX HFA [Suspect]
     Dates: start: 20080419, end: 20080421

REACTIONS (7)
  - DRUG INEFFECTIVE [None]
  - DYSPNOEA [None]
  - FEAR [None]
  - ILL-DEFINED DISORDER [None]
  - MIGRAINE [None]
  - OVERDOSE [None]
  - PHARMACEUTICAL PRODUCT COMPLAINT [None]
